FAERS Safety Report 8777048 (Version 2)
Quarter: 2015Q1

REPORT INFORMATION
  Report Type: Spontaneous
  Country: TN (occurrence: TN)
  Receive Date: 20120911
  Receipt Date: 20150119
  Transmission Date: 20150721
  Serious: Yes (Hospitalization)
  Sender: FDA-Public Use
  Company Number: TN-RANBAXY-2012R1-59781

PATIENT
  Age: 36 Year
  Sex: Male

DRUGS (4)
  1. RANITIDINE [Suspect]
     Active Substance: RANITIDINE\RANITIDINE HYDROCHLORIDE
     Indication: EPIGASTRIC DISCOMFORT
  2. PIROXICAM. [Concomitant]
     Active Substance: PIROXICAM
     Indication: RENAL COLIC
     Route: 030
  3. RANITIDINE [Suspect]
     Active Substance: RANITIDINE\RANITIDINE HYDROCHLORIDE
     Indication: RENAL COLIC
     Dosage: UNK
     Route: 040
  4. PIROXICAM. [Concomitant]
     Active Substance: PIROXICAM
     Indication: EPIGASTRIC DISCOMFORT

REACTIONS (1)
  - Anaphylactic reaction [Recovered/Resolved]
